FAERS Safety Report 5597208-9 (Version None)
Quarter: 2007Q4

REPORT INFORMATION
  Report Type: 
  Country: None (occurrence: None)
  Receive Date: 20071221
  Receipt Date: 20071009
  Transmission Date: 20080405
  Serious: No
  Sender: FDA-Public Use
  Company Number: US-CVT-070167

PATIENT
  Age: 68 Year
  Sex: Male

DRUGS (19)
  1. RANEXA [Suspect]
     Indication: ANGINA PECTORIS
     Dates: start: 20070918
  2. AZITHROMYCIN [Suspect]
     Dosage: 500 MG, QD, ORAL ; 250 MG, QD, ORAL
     Route: 048
     Dates: start: 20070920, end: 20070920
  3. AZITHROMYCIN [Suspect]
     Dosage: 500 MG, QD, ORAL ; 250 MG, QD, ORAL
     Route: 048
     Dates: start: 20070921, end: 20070924
  4. WARFARIN/000014801/(WARFARIN) [Suspect]
     Dosage: 40 MG, Q WEEKLY ; 42.5 MG Q WEEKLY ; 45 MG, Q WEEKLY ; 42.5 MG Q WEEKLY
     Dates: start: 20070608, end: 20070822
  5. WARFARIN/000014801/(WARFARIN) [Suspect]
     Dosage: 40 MG, Q WEEKLY ; 42.5 MG Q WEEKLY ; 45 MG, Q WEEKLY ; 42.5 MG Q WEEKLY
     Dates: start: 20070107, end: 20070920
  6. WARFARIN/000014801/(WARFARIN) [Suspect]
     Dosage: 40 MG, Q WEEKLY ; 42.5 MG Q WEEKLY ; 45 MG, Q WEEKLY ; 42.5 MG Q WEEKLY
     Dates: start: 20070920, end: 20070928
  7. WARFARIN/000014801/(WARFARIN) [Suspect]
     Dosage: 40 MG, Q WEEKLY ; 42.5 MG Q WEEKLY ; 45 MG, Q WEEKLY ; 42.5 MG Q WEEKLY
     Dates: start: 20070930
  8. ALBUTEROL /00139501/ (SALBUTAMOL) [Concomitant]
  9. CLOTRIMAZOLE [Concomitant]
  10. GEMFIBROZIL [Concomitant]
  11. LOSARTAN POTASSIUM [Concomitant]
  12. ROSIGLITAZONE MALEATE [Concomitant]
  13. RANITIDINE/00550801/ (RANITIDINE) [Concomitant]
  14. ATENOLOL [Concomitant]
  15. FUROSEMIDE/00032601/ (FUROSEMIDE) [Concomitant]
  16. GLYBURIDE [Concomitant]
  17. DICLOFENAC/00373201/ (DICLOFENAC) [Concomitant]
  18. SIMVASTATIN [Concomitant]
  19. NITROGLYCERIN [Concomitant]

REACTIONS (1)
  - INTERNATIONAL NORMALISED RATIO INCREASED [None]
